FAERS Safety Report 22930297 (Version 4)
Quarter: 2024Q1

REPORT INFORMATION
  Report Type: Report from Study
  Country: US (occurrence: US)
  Receive Date: 20230911
  Receipt Date: 20240112
  Transmission Date: 20240410
  Serious: Yes (Other)
  Sender: FDA-Public Use
  Company Number: US-BAYER-2023A122982

PATIENT
  Age: 81 Year
  Sex: Female

DRUGS (6)
  1. ADEMPAS [Suspect]
     Active Substance: RIOCIGUAT
     Indication: Pulmonary hypertension
     Route: 048
  2. ADEMPAS [Suspect]
     Active Substance: RIOCIGUAT
     Indication: Pulmonary hypertension
     Dosage: 1 MG, TID
     Route: 048
     Dates: start: 202308, end: 2023
  3. ADEMPAS [Suspect]
     Active Substance: RIOCIGUAT
     Indication: Pulmonary hypertension
     Dosage: 1.5 MG, TID
     Route: 048
     Dates: start: 202309, end: 202309
  4. ADEMPAS [Suspect]
     Active Substance: RIOCIGUAT
     Indication: Pulmonary hypertension
     Dosage: 2 MG, TID
     Route: 048
     Dates: start: 202309, end: 2023
  5. ADEMPAS [Suspect]
     Active Substance: RIOCIGUAT
     Indication: Pulmonary hypertension
     Dosage: 2.5 MG, TID
     Route: 048
     Dates: start: 202310
  6. KEPPRA [Concomitant]
     Active Substance: LEVETIRACETAM

REACTIONS (11)
  - Blood pressure fluctuation [None]
  - Diarrhoea [None]
  - Dizziness [Recovered/Resolved]
  - Gait inability [None]
  - Dyspepsia [None]
  - Dizziness [None]
  - Joint swelling [None]
  - Peripheral swelling [None]
  - Product dose omission issue [None]
  - Product dose omission issue [None]
  - Product dose omission in error [None]

NARRATIVE: CASE EVENT DATE: 20230101
